FAERS Safety Report 4596755-6 (Version None)
Quarter: 2005Q1

REPORT INFORMATION
  Report Type: 
  Country: None (occurrence: None)
  Receive Date: 20050228
  Receipt Date: 20031110
  Transmission Date: 20050727
  Serious: Yes (Disabling)
  Sender: FDA-Public Use
  Company Number: 6663

PATIENT
  Age: 44 Year
  Sex: Female

DRUGS (7)
  1. METHOTREXATE [Suspect]
     Indication: RHEUMATOID ARTHRITIS
     Dosage: 12.5 MG WEEKLY PO
     Route: 048
     Dates: start: 20030728
  2. CO-CODAMOL [Concomitant]
  3. PARACETAMOL [Concomitant]
  4. FOLIC ACID [Concomitant]
  5. LANSOPRAZOLE [Concomitant]
  6. NORETHISTERONE [Concomitant]
  7. TRANEXAMIC ACID [Concomitant]

REACTIONS (1)
  - MENORRHAGIA [None]
